FAERS Safety Report 7543251-X (Version None)
Quarter: 2011Q2

REPORT INFORMATION
  Report Type: 
  Country: None (occurrence: None)
  Receive Date: 20110613
  Receipt Date: 20110606
  Transmission Date: 20111010
  Serious: Yes (Hospitalization)
  Sender: FDA-Public Use
  Company Number: PHHY2011DK49973

PATIENT
  Sex: Male

DRUGS (1)
  1. NICOTINE [Suspect]

REACTIONS (1)
  - TOXICITY TO VARIOUS AGENTS [None]
